FAERS Safety Report 18371760 (Version 2)
Quarter: 2020Q4

REPORT INFORMATION
  Report Type: Spontaneous
  Country: FI (occurrence: FI)
  Receive Date: 20201012
  Receipt Date: 20201014
  Transmission Date: 20210114
  Serious: Yes (Other)
  Sender: FDA-Public Use
  Company Number: FI-SA-2020SA278116

PATIENT

DRUGS (4)
  1. ALPROLIX [Suspect]
     Active Substance: EFTRENONACOG ALFA
     Indication: FACTOR IX DEFICIENCY
     Dosage: 1500 IU
     Route: 042
     Dates: start: 2020, end: 2020
  2. ALPROLIX [Suspect]
     Active Substance: EFTRENONACOG ALFA
     Indication: FACTOR IX DEFICIENCY
     Dosage: 1500 IU
     Route: 042
     Dates: start: 2020, end: 2020
  3. ALPROLIX [Suspect]
     Active Substance: EFTRENONACOG ALFA
     Dosage: DOSE INCREASED
     Route: 042
     Dates: start: 2020
  4. ALPROLIX [Suspect]
     Active Substance: EFTRENONACOG ALFA
     Dosage: DOSE INCREASED
     Route: 042
     Dates: start: 2020

REACTIONS (6)
  - Suspected product quality issue [Unknown]
  - Decreased activity [Unknown]
  - Spontaneous haemorrhage [Unknown]
  - Haemarthrosis [Unknown]
  - Arthralgia [Unknown]
  - Drug ineffective [Unknown]

NARRATIVE: CASE EVENT DATE: 2020
